FAERS Safety Report 6726269-6 (Version None)
Quarter: 2010Q2

REPORT INFORMATION
  Report Type: 
  Country: None (occurrence: None)
  Receive Date: 20100514
  Receipt Date: 20100514
  Transmission Date: 20101027
  Serious: Yes (Hospitalization)
  Sender: FDA-Public Use
  Company Number: BE-ABBOTT-10P-013-0642319-00

PATIENT
  Sex: Male

DRUGS (12)
  1. HUMIRA [Suspect]
     Indication: RHEUMATOID ARTHRITIS
  2. LEDERTREXATE [Concomitant]
     Indication: DRUG USE FOR UNKNOWN INDICATION
  3. LEDERTREXATE [Concomitant]
  4. MEDROL [Concomitant]
     Indication: DRUG USE FOR UNKNOWN INDICATION
  5. FOLIC ACID [Concomitant]
     Indication: DRUG USE FOR UNKNOWN INDICATION
  6. BUMEX [Concomitant]
     Indication: DRUG USE FOR UNKNOWN INDICATION
     Route: 048
  7. ALDACTONE [Concomitant]
     Indication: DRUG USE FOR UNKNOWN INDICATION
     Route: 048
  8. KREDEX [Concomitant]
     Indication: DRUG USE FOR UNKNOWN INDICATION
  9. ENALAPRIL MALEATE [Concomitant]
     Indication: DRUG USE FOR UNKNOWN INDICATION
     Dosage: AT 2PM
  10. NEXIUM [Concomitant]
     Indication: DRUG USE FOR UNKNOWN INDICATION
  11. LOSOFERRON [Concomitant]
     Indication: DRUG USE FOR UNKNOWN INDICATION
     Route: 048
  12. BEFACT FORTE [Concomitant]
     Indication: DRUG USE FOR UNKNOWN INDICATION
     Route: 048

REACTIONS (13)
  - CARDIOMYOPATHY [None]
  - CHRONIC RESPIRATORY DISEASE [None]
  - DECREASED APPETITE [None]
  - DIARRHOEA [None]
  - DYSPNOEA [None]
  - GASTRIC DISORDER [None]
  - GASTRIC ULCER [None]
  - JOINT SWELLING [None]
  - PNEUMONIA [None]
  - PYREXIA [None]
  - REFLUX OESOPHAGITIS [None]
  - VOMITING [None]
  - WEIGHT DECREASED [None]
